FAERS Safety Report 7902897-7 (Version None)
Quarter: 2011Q4

REPORT INFORMATION
  Report Type: 
  Country: None (occurrence: None)
  Receive Date: 20111109
  Receipt Date: 20111103
  Transmission Date: 20120403
  Serious: Yes (Life-Threatening, Hospitalization, Other)
  Sender: FDA-Public Use
  Company Number: US-ELI_LILLY_AND_COMPANY-US201111001882

PATIENT
  Sex: Female

DRUGS (4)
  1. GLUCAGON [Suspect]
     Dosage: UNK, PRN
  2. METHOTREXATE [Concomitant]
  3. DEXTROSE [Concomitant]
     Indication: HYPOGLYCAEMIA
     Dosage: UNK, UNKNOWN
  4. GLUCAGON [Suspect]
     Indication: HYPOGLYCAEMIA
     Dosage: UNK, PRN
     Dates: start: 20000301

REACTIONS (3)
  - MOBILITY DECREASED [None]
  - ASTHENIA [None]
  - DYSPNOEA [None]
